FAERS Safety Report 10445056 (Version 1)
Quarter: 2014Q3

REPORT INFORMATION
  Report Type: Spontaneous
  Country: AT (occurrence: AT)
  Receive Date: 20140910
  Receipt Date: 20140910
  Transmission Date: 20150326
  Serious: Yes (Other)
  Sender: FDA-Public Use
  Company Number: AT-BRISTOL-MYERS SQUIBB COMPANY-21354303

PATIENT
  Age: 71 Year
  Sex: Male
  Weight: 94 kg

DRUGS (2)
  1. URBASON [Concomitant]
     Active Substance: METHYLPREDNISOLONE
  2. YERVOY [Suspect]
     Active Substance: IPILIMUMAB
     Indication: MALIGNANT MELANOMA
     Dosage: 4 INFUSIONS. 90 MINUTE INFUSION
     Dates: start: 20140612, end: 20140821

REACTIONS (4)
  - Gastric disorder [Unknown]
  - Weight decreased [Unknown]
  - Diarrhoea [Unknown]
  - Skin disorder [Unknown]

NARRATIVE: CASE EVENT DATE: 20140612
